FAERS Safety Report 9448390 (Version 1)
Quarter: 2013Q3

REPORT INFORMATION
  Report Type: Spontaneous
  Country: JP (occurrence: JP)
  Receive Date: 20130808
  Receipt Date: 20130808
  Transmission Date: 20140515
  Serious: Yes (Hospitalization, Other)
  Sender: FDA-Public Use
  Company Number: JP-MPIJNJ-2013-03952

PATIENT
  Sex: 0

DRUGS (2)
  1. VELCADE [Suspect]
     Indication: PLASMA CELL MYELOMA
     Dosage: 1.3 MG/M2, 1/WEEK
     Route: 058
     Dates: start: 20130411
  2. DEXART [Suspect]
     Indication: PRODUCT USED FOR UNKNOWN INDICATION
     Dosage: 9.9 MG, UNK
     Route: 042
     Dates: start: 20130411, end: 20130509

REACTIONS (3)
  - Inappropriate antidiuretic hormone secretion [Unknown]
  - Herpes zoster [Recovered/Resolved]
  - Hyponatraemia [Unknown]
